FAERS Safety Report 12443901 (Version 4)
Quarter: 2019Q4

REPORT INFORMATION
  Report Type: Spontaneous
  Country: US (occurrence: US)
  Receive Date: 20160607
  Receipt Date: 20191227
  Transmission Date: 20200122
  Serious: Yes (Other)
  Sender: FDA-Public Use
  Company Number: US-SA-2016SA046790

PATIENT
  Age: 82 Year
  Sex: Female

DRUGS (4)
  1. TOUJEO [Suspect]
     Active Substance: INSULIN GLARGINE
     Indication: TYPE 2 DIABETES MELLITUS
     Dosage: 18 DF,HS
     Route: 065
     Dates: start: 2015
  2. TOUJEO [Suspect]
     Active Substance: INSULIN GLARGINE
     Dosage: 10 IU, QD
     Route: 065
  3. TOUJEO [Suspect]
     Active Substance: INSULIN GLARGINE
     Dosage: 6 IU, QD
     Route: 065
     Dates: start: 201802
  4. TOUJEO [Suspect]
     Active Substance: INSULIN GLARGINE
     Dosage: 16 IU, QD
     Route: 065

REACTIONS (10)
  - Injection site pain [Unknown]
  - Pain [Unknown]
  - Feeling abnormal [Unknown]
  - Presyncope [Unknown]
  - Chest injury [Unknown]
  - Loss of personal independence in daily activities [Unknown]
  - Neck injury [Unknown]
  - Injection site bruising [Unknown]
  - Fall [Unknown]
  - Cold sweat [Unknown]

NARRATIVE: CASE EVENT DATE: 20190211
